FAERS Safety Report 19819605 (Version 6)
Quarter: 2023Q4

REPORT INFORMATION
  Report Type: Report from Study
  Country: MX (occurrence: MX)
  Receive Date: 20210913
  Receipt Date: 20231227
  Transmission Date: 20240110
  Serious: Yes (Other)
  Sender: FDA-Public Use
  Company Number: NVSC2021MX206382

PATIENT
  Age: 54 Year
  Sex: Male
  Weight: 82 kg

DRUGS (3)
  1. GILENYA [Suspect]
     Active Substance: FINGOLIMOD HYDROCHLORIDE
     Indication: Multiple sclerosis
     Dosage: 1 DF, QD
     Route: 048
     Dates: start: 20200504
  2. GILENYA [Suspect]
     Active Substance: FINGOLIMOD HYDROCHLORIDE
     Dosage: UNK
     Route: 065
  3. GILENYA [Suspect]
     Active Substance: FINGOLIMOD HYDROCHLORIDE
     Dosage: 1*0.5 MG
     Route: 065
     Dates: start: 2016

REACTIONS (7)
  - Skin cancer [Recovered/Resolved]
  - Scab [Not Recovered/Not Resolved]
  - Depressed mood [Unknown]
  - Ill-defined disorder [Unknown]
  - Melanocytic naevus [Not Recovered/Not Resolved]
  - Tachycardia [Unknown]
  - Prostatic specific antigen increased [Unknown]

NARRATIVE: CASE EVENT DATE: 20210801
